FAERS Safety Report 19884676 (Version 1)
Quarter: 2021Q3

REPORT INFORMATION
  Report Type: Spontaneous
  Country: US (occurrence: US)
  Receive Date: 20210924
  Receipt Date: 20210924
  Transmission Date: 20211014
  Serious: No
  Sender: FDA-Public Use
  Company Number: None

PATIENT
  Sex: Female

DRUGS (1)
  1. VEMLIDY [Suspect]
     Active Substance: TENOFOVIR ALAFENAMIDE FUMARATE
     Indication: HEPATITIS B
     Route: 048
     Dates: start: 20210603

REACTIONS (6)
  - Pain [None]
  - Myalgia [None]
  - Infection [None]
  - Abdominal pain upper [None]
  - Loss of consciousness [None]
  - Asthenia [None]
